FAERS Safety Report 24165998 (Version 2)
Quarter: 2025Q3

REPORT INFORMATION
  Report Type: Spontaneous
  Country: US (occurrence: US)
  Receive Date: 20240802
  Receipt Date: 20250804
  Transmission Date: 20251020
  Serious: No
  Sender: ACCORD
  Company Number: US-Accord-422336

PATIENT
  Age: 48 Year
  Sex: Female

DRUGS (6)
  1. DOCETAXEL [Suspect]
     Active Substance: DOCETAXEL
     Indication: Breast cancer
     Dosage: CYCLE 1, EVERY 3 WEEK, CONCENTRATE
     Dates: start: 20201208, end: 20201208
  2. CYCLOPHOSPHAMIDE [Suspect]
     Active Substance: CYCLOPHOSPHAMIDE
     Indication: Breast cancer
     Dosage: CYCLE 1, EVERY 3 WEEK
     Dates: start: 20201208, end: 20201208
  3. CYCLOPHOSPHAMIDE [Suspect]
     Active Substance: CYCLOPHOSPHAMIDE
     Indication: Breast cancer
     Dosage: CYCLE 2, EVERY 3 WEEK
     Dates: start: 20210105, end: 20210105
  4. DOCETAXEL [Suspect]
     Active Substance: DOCETAXEL
     Indication: Breast cancer
     Dosage: CYCLE 2, EVERY 3 WEEK, CONCENTRATE
     Dates: start: 20210105, end: 20210105
  5. DOCETAXEL [Suspect]
     Active Substance: DOCETAXEL
     Indication: Breast cancer
     Dosage: CYCLE 3, EVERY 3 WEEK, CONCENTRATE
     Dates: start: 20210127, end: 20210127
  6. CYCLOPHOSPHAMIDE [Suspect]
     Active Substance: CYCLOPHOSPHAMIDE
     Indication: Breast cancer
     Dosage: CYCLE 3, EVERY 3 WEEK
     Dates: start: 20210127, end: 20210127

REACTIONS (1)
  - Lacrimation increased [Not Recovered/Not Resolved]

NARRATIVE: CASE EVENT DATE: 20201208
